FAERS Safety Report 15371371 (Version 5)
Quarter: 2018Q4

REPORT INFORMATION
  Report Type: Report from Study
  Country: CN (occurrence: CN)
  Receive Date: 20180911
  Receipt Date: 20181119
  Transmission Date: 20190204
  Serious: Yes (Hospitalization)
  Sender: FDA-Public Use
  Company Number: CN-TAKEDA-2018TUS026394

PATIENT
  Age: 42 Year
  Sex: Female
  Weight: 35 kg

DRUGS (10)
  1. MESALAZINE [Concomitant]
     Active Substance: MESALAMINE
     Indication: CROHN^S DISEASE
     Dosage: 1 G, QID
     Route: 048
     Dates: start: 20170414, end: 20180914
  2. RABEPRAZOLE SODIUM. [Concomitant]
     Active Substance: RABEPRAZOLE SODIUM
     Dosage: 10 MG, QD
     Route: 048
     Dates: start: 20181029, end: 20181030
  3. MESALAZINE [Concomitant]
     Active Substance: MESALAMINE
     Dosage: 50 G, UNK
     Route: 048
     Dates: start: 20180903, end: 20180903
  4. PINAVERIUM BROMIDE [Concomitant]
     Active Substance: PINAVERIUM BROMIDE
     Dosage: 50 MG, BID
     Route: 048
     Dates: start: 20180904, end: 20180907
  5. PINAVERIUM BROMIDE [Concomitant]
     Active Substance: PINAVERIUM BROMIDE
     Dosage: 50 MG, TID
     Route: 048
     Dates: start: 20180907, end: 20180908
  6. RABEPRAZOLE SODIUM. [Concomitant]
     Active Substance: RABEPRAZOLE SODIUM
     Indication: GASTRIC DISORDER
     Dosage: 20 MG, QD
     Route: 048
     Dates: start: 20171229
  7. VEDOLIZUMAB [Suspect]
     Active Substance: VEDOLIZUMAB
     Indication: CROHN^S DISEASE
     Dosage: UNK
     Route: 042
     Dates: start: 20180525, end: 20180901
  8. RABEPRAZOLE SODIUM. [Concomitant]
     Active Substance: RABEPRAZOLE SODIUM
     Dosage: 70 MG, QD
     Route: 048
     Dates: start: 20180903, end: 20180903
  9. MESALAZINE [Concomitant]
     Active Substance: MESALAMINE
     Dosage: 50 G, UNK
     Route: 048
     Dates: start: 20180911, end: 20180911
  10. PINAVERIUM BROMIDE [Concomitant]
     Active Substance: PINAVERIUM BROMIDE
     Indication: PAIN
     Dosage: 50 MG, TID
     Route: 048
     Dates: start: 20180622, end: 20180802

REACTIONS (1)
  - Intestinal fistula [Recovered/Resolved]

NARRATIVE: CASE EVENT DATE: 20180903
